FAERS Safety Report 8239551-0 (Version None)
Quarter: 2012Q1

REPORT INFORMATION
  Report Type: 
  Country: None (occurrence: None)
  Receive Date: 20120328
  Receipt Date: 20120323
  Transmission Date: 20120608
  Serious: Yes (Life-Threatening, Hospitalization)
  Sender: FDA-Public Use
  Company Number: US-JNJFOC-20120312352

PATIENT
  Sex: Female
  Weight: 80.74 kg

DRUGS (9)
  1. DURAGESIC-100 [Suspect]
     Indication: FIBROMYALGIA
     Route: 062
  2. NEURONTIN [Concomitant]
     Indication: NEURALGIA
     Route: 048
  3. DURAGESIC-100 [Suspect]
     Route: 062
  4. DURAGESIC-100 [Suspect]
     Route: 062
  5. DURAGESIC-100 [Suspect]
     Indication: ARTHRITIS
     Route: 062
  6. DURAGESIC-100 [Suspect]
     Indication: INJURY
     Route: 062
  7. DURAGESIC-100 [Suspect]
     Route: 062
  8. HYDROCODONE [Concomitant]
     Indication: BREAKTHROUGH PAIN
     Route: 048
  9. UNKNOWN MEDICATION [Concomitant]
     Indication: BLOOD PRESSURE
     Route: 065

REACTIONS (6)
  - PAIN [None]
  - SKULL FRACTURE [None]
  - FALL [None]
  - SUBDURAL HAEMATOMA [None]
  - COMA [None]
  - ROAD TRAFFIC ACCIDENT [None]
